FAERS Safety Report 4358907-X (Version None)
Quarter: 2004Q2

REPORT INFORMATION
  Report Type: 
  Country: None (occurrence: None)
  Receive Date: 20040512
  Receipt Date: 20040506
  Transmission Date: 20050107
  Serious: Yes (Hospitalization)
  Sender: FDA-Public Use
  Company Number: 200410108BYL

PATIENT
  Age: 78 Year
  Sex: Female
  Weight: 48.5 kg

DRUGS (8)
  1. ASPIRIN [Suspect]
     Indication: ACUTE MYOCARDIAL INFARCTION
     Dosage: 100 MG, QD, ORAL
     Route: 048
     Dates: start: 20040110, end: 20040210
  2. PANALDINE [Concomitant]
  3. FLUITRAN [Concomitant]
  4. ADALAT [Concomitant]
  5. CARDENALIN [Concomitant]
  6. BLOPRESS [Concomitant]
  7. SIGMART [Concomitant]
  8. LASIX [Concomitant]

REACTIONS (4)
  - JAUNDICE [None]
  - LIVER DISORDER [None]
  - LYMPHOCYTE STIMULATION TEST POSITIVE [None]
  - PRURITUS [None]
